FAERS Safety Report 4825698-5 (Version None)
Quarter: 2005Q4

REPORT INFORMATION
  Report Type: 
  Country: None (occurrence: None)
  Receive Date: 20051109
  Receipt Date: 20051026
  Transmission Date: 20060501
  Serious: Yes (Death, Other)
  Sender: FDA-Public Use
  Company Number: 2005-10-1922

PATIENT
  Age: 63 Year
  Sex: Male

DRUGS (13)
  1. SALBUTAMOL SULPHATE ^PROVENTIL HFA^ ORAL AEROSOL [Suspect]
     Dosage: ORAL AER INH
     Route: 055
  2. SPIRIVA [Suspect]
     Dosage: 18 MCG
  3. BUMETANIDE [Suspect]
     Dosage: 1 MG
  4. HUMALOG [Suspect]
     Dosage: 100 UNITS SUBCUTANEOUS
     Route: 058
  5. FOSAMAX [Suspect]
     Dosage: 10 MG QW ORAL
     Route: 048
  6. HUMULIN R [Suspect]
     Dosage: 100 UNITS SUBCUTANEOUS
     Route: 058
  7. HUMULIN M3 INJE SOLN - MONOTHERAPY [Suspect]
     Dosage: SUBCUTANEOUS
     Route: 058
  8. LISINOPRIL [Suspect]
     Dosage: 10 MG ORAL
     Route: 048
  9. MONTELUKAST TABLETS [Suspect]
     Dosage: 10 MG ORAL
     Route: 048
  10. NYSTATIN [Suspect]
     Dosage: 100000 U
  11. ACETAMINOPHEN [Suspect]
     Dosage: 500 MG
  12. SERETIDE (SALMETEROL SINAFOATE/FLUTICASONE PROPIONAT ORAL AEROSOL [Suspect]
     Dosage: ORAL AER INH
     Route: 055
  13. TRAMADOL HCL [Suspect]
     Dosage: 50 MG

REACTIONS (1)
  - LOBAR PNEUMONIA [None]
